FAERS Safety Report 20017461 (Version 1)
Quarter: 2021Q4

REPORT INFORMATION
  Report Type: Spontaneous
  Country: US (occurrence: US)
  Receive Date: 20211030
  Receipt Date: 20211030
  Transmission Date: 20220303
  Serious: Yes (Death, Life-Threatening, Hospitalization, Other)
  Sender: FDA-Public Use
  Company Number: US-MLMSERVICE-20211013-3162389-1

PATIENT
  Age: 67 Year
  Sex: Male

DRUGS (3)
  1. MYCOPHENOLIC ACID [Suspect]
     Active Substance: MYCOPHENOLIC ACID
     Indication: Lung transplant
     Dosage: ON REDUCED DOSE
  2. TACROLIMUS [Suspect]
     Active Substance: TACROLIMUS
     Indication: Lung transplant
  3. PREDNISONE [Suspect]
     Active Substance: PREDNISONE
     Indication: Lung transplant

REACTIONS (5)
  - COVID-19 [Fatal]
  - Haemophagocytic lymphohistiocytosis [Fatal]
  - Hypoxia [Fatal]
  - Paralysis [Unknown]
  - Epstein-Barr viraemia [Unknown]
